FAERS Safety Report 25274272 (Version 1)
Quarter: 2025Q2

REPORT INFORMATION
  Report Type: Spontaneous
  Country: US (occurrence: US)
  Receive Date: 20250506
  Receipt Date: 20250506
  Transmission Date: 20250717
  Serious: No
  Sender: MERCK SHARP & DOHME LLC
  Company Number: US-009507513-2281892

PATIENT
  Sex: Male

DRUGS (1)
  1. VERICIGUAT [Suspect]
     Active Substance: VERICIGUAT
     Route: 048

REACTIONS (6)
  - Confusional state [Unknown]
  - Feeling abnormal [Unknown]
  - Hypotension [Unknown]
  - Fatigue [Unknown]
  - Hypersomnia [Unknown]
  - Ejection fraction abnormal [Unknown]
